FAERS Safety Report 10185162 (Version 1)
Quarter: 2014Q2

REPORT INFORMATION
  Report Type: Spontaneous
  Country: US (occurrence: US)
  Receive Date: 20140521
  Receipt Date: 20140521
  Transmission Date: 20141212
  Serious: Yes (Other)
  Sender: FDA-Public Use
  Company Number: US-RB-065890-14

PATIENT
  Age: 27 Year
  Sex: Female

DRUGS (1)
  1. MUCINEX SEVERE COLD CAPLET [Suspect]
     Indication: PRODUCT USED FOR UNKNOWN INDICATION
     Dosage: LAST TOOK ON 10-MAY-2014
     Route: 048
     Dates: start: 20140508

REACTIONS (6)
  - Anuria [Recovered/Resolved]
  - Muscle twitching [Recovered/Resolved]
  - Dry mouth [Recovered/Resolved]
  - Nausea [Recovered/Resolved]
  - Dizziness [Recovered/Resolved]
  - Dizziness [Recovered/Resolved]
